FAERS Safety Report 13742058 (Version 1)
Quarter: 2017Q3

REPORT INFORMATION
  Report Type: Spontaneous
  Country: FR (occurrence: FR)
  Receive Date: 20170711
  Receipt Date: 20170711
  Transmission Date: 20171127
  Serious: Yes (Other)
  Sender: FDA-Public Use
  Company Number: PHHY2010FR53637

PATIENT
  Sex: Female

DRUGS (2)
  1. CARTEOLOL (NVO) [Suspect]
     Active Substance: CARTEOLOL HYDROCHLORIDE
     Indication: OCULAR HYPERTENSION
     Dosage: 1 GTT, DAILY DOSE
     Route: 047
     Dates: start: 20100125
  2. LATANOPROST. [Suspect]
     Active Substance: LATANOPROST

REACTIONS (9)
  - Joint swelling [Unknown]
  - Arthralgia [Unknown]
  - Arthritis [Unknown]
  - Spondylitis [Unknown]
  - Antinuclear antibody increased [Unknown]
  - Rheumatoid arthritis [Unknown]
  - Haptoglobin increased [Unknown]
  - Rheumatoid factor increased [Unknown]
  - Intraocular pressure increased [Unknown]
